FAERS Safety Report 8291040-3 (Version None)
Quarter: 2012Q2

REPORT INFORMATION
  Report Type: 
  Country: None (occurrence: None)
  Receive Date: 20120417
  Receipt Date: 20111111
  Transmission Date: 20120825
  Serious: No
  Sender: FDA-Public Use
  Company Number: US-ASTRAZENECA-2010SE39353

PATIENT
  Age: 60 Year
  Sex: Male

DRUGS (7)
  1. ASPIRIN [Concomitant]
  2. BENICAR [Concomitant]
  3. NEXIUM [Suspect]
     Dosage: FREQUENCY EVERY OTHER DAY
     Route: 048
  4. NEXIUM [Suspect]
     Dosage: FREQUENCY DAILY
     Route: 048
  5. I-CAPS [Concomitant]
     Indication: MACULAR DEGENERATION
  6. CADUET [Concomitant]
  7. PLAVIX [Concomitant]

REACTIONS (3)
  - CHEST PAIN [None]
  - MALAISE [None]
  - DRUG DOSE OMISSION [None]
